FAERS Safety Report 7246492-4 (Version None)
Quarter: 2011Q1

REPORT INFORMATION
  Report Type: 
  Country: None (occurrence: None)
  Receive Date: 20110126
  Receipt Date: 20110121
  Transmission Date: 20110831
  Serious: No
  Sender: FDA-Public Use
  Company Number: US-BAYER-2011-007867

PATIENT
  Sex: Female

DRUGS (1)
  1. BETAPACE [Suspect]
     Indication: VENTRICULAR ARRHYTHMIA
     Dosage: UNK
     Dates: start: 20100701

REACTIONS (1)
  - RENAL PAIN [None]
